FAERS Safety Report 25550080 (Version 1)
Quarter: 2025Q3

REPORT INFORMATION
  Report Type: Spontaneous
  Country: EU (occurrence: EU)
  Receive Date: 20250714
  Receipt Date: 20250714
  Transmission Date: 20251021
  Serious: Yes (Other)
  Sender: REGENERON
  Company Number: EU-BAYER-2025A090450

PATIENT
  Age: 80 Year
  Sex: Female

DRUGS (1)
  1. EYLEA [Suspect]
     Active Substance: AFLIBERCEPT
     Indication: Neovascular age-related macular degeneration
     Dosage: 2 MG, TOTAL OF 6 DOSES OF EYLEA; RIGHT EYE, 40 MG/ML
     Dates: start: 202212, end: 202306

REACTIONS (3)
  - Retinal oedema [Unknown]
  - Subretinal hyperreflective exudation [Unknown]
  - Drug ineffective [Unknown]

NARRATIVE: CASE EVENT DATE: 20230601
